FAERS Safety Report 21408568 (Version 4)
Quarter: 2023Q2

REPORT INFORMATION
  Report Type: Report from Study
  Country: KR (occurrence: KR)
  Receive Date: 20221004
  Receipt Date: 20230622
  Transmission Date: 20230722
  Serious: Yes (Death, Life-Threatening, Hospitalization)
  Sender: FDA-Public Use
  Company Number: KR-PFIZER INC-202201197684

PATIENT
  Age: 28 Year
  Sex: Female
  Weight: 51 kg

DRUGS (26)
  1. BESPONSA [Suspect]
     Active Substance: INOTUZUMAB OZOGAMICIN
     Indication: Acute lymphocytic leukaemia
     Dosage: 1.21 MG, 1X/DAY
     Route: 042
     Dates: start: 20220926, end: 20220926
  2. ABSTRAL [Concomitant]
     Active Substance: FENTANYL CITRATE
     Indication: Bone pain
     Dosage: FOR 7 DAYS
     Route: 048
     Dates: start: 20220927, end: 20220928
  3. CIRCADIN PR [Concomitant]
     Indication: Prophylaxis
     Dosage: FOR 8 DAYS
     Route: 048
     Dates: start: 20220926, end: 20220928
  4. HYDROCORTISONE SODIUM SUCCINATE [Concomitant]
     Active Substance: HYDROCORTISONE SODIUM SUCCINATE
     Indication: Prophylaxis
     Dosage: 100 MG
     Route: 042
     Dates: start: 20220926, end: 20220926
  5. HYDROCORTISONE SODIUM SUCCINATE [Concomitant]
     Active Substance: HYDROCORTISONE SODIUM SUCCINATE
     Dosage: 100 MG
     Route: 042
     Dates: start: 20220927, end: 20220927
  6. HYDROCORTISONE SODIUM SUCCINATE [Concomitant]
     Active Substance: HYDROCORTISONE SODIUM SUCCINATE
     Dosage: 100 MG
     Route: 042
     Dates: start: 20220928, end: 20220928
  7. FENTADUR [Concomitant]
     Indication: Bone pain
     Dosage: 2.75 MG
     Route: 062
     Dates: start: 20220927
  8. HYDRINE [HYDROXYCARBAMIDE] [Concomitant]
     Indication: Acute lymphocytic leukaemia
     Dosage: 1000 MG
     Route: 048
     Dates: start: 20220914, end: 20220918
  9. HYDRINE [HYDROXYCARBAMIDE] [Concomitant]
     Dosage: 3000 MG
     Route: 048
     Dates: start: 20220919, end: 20220925
  10. K CAB [Concomitant]
     Indication: Prophylaxis
     Dosage: 50 MG
     Route: 048
     Dates: start: 20220919, end: 20220928
  11. LIDOCAINE HYDROCHLORIDE [Concomitant]
     Active Substance: LIDOCAINE HYDROCHLORIDE
     Indication: Prophylaxis
     Dosage: UNK
     Route: 058
     Dates: start: 20220914, end: 20220914
  12. ONSERAN [Concomitant]
     Indication: Prophylaxis
     Dosage: 7 DAYS
     Route: 048
     Dates: start: 20220927
  13. OXYCODONE HYDROCHLORIDE [Concomitant]
     Active Substance: OXYCODONE HYDROCHLORIDE
     Indication: Bone pain
     Dosage: 5 MG
     Route: 042
     Dates: start: 20220927, end: 20220927
  14. PHENIRAMINE [CHLORPHENAMINE MALEATE] [Concomitant]
     Indication: Prophylaxis
     Dosage: 4 MG
     Route: 042
     Dates: start: 20220926, end: 20220926
  15. PHENIRAMINE [CHLORPHENAMINE MALEATE] [Concomitant]
     Dosage: 8 MG
     Route: 042
     Dates: start: 20220928, end: 20220928
  16. SULFAMETHOXAZOLE\TRIMETHOPRIM [Concomitant]
     Active Substance: SULFAMETHOXAZOLE\TRIMETHOPRIM
     Indication: Prophylaxis
     Dosage: 8 DAYS
     Route: 048
     Dates: start: 20220926
  17. SODIUM BICARBONATE [Concomitant]
     Active Substance: SODIUM BICARBONATE
     Indication: Prophylaxis
     Dosage: 40 MEQ
     Route: 042
     Dates: start: 20220926, end: 20220926
  18. SODIUM BICARBONATE [Concomitant]
     Active Substance: SODIUM BICARBONATE
     Dosage: 560 MEQ
     Route: 042
     Dates: start: 20220928, end: 20220928
  19. ALLOPURINOL [Concomitant]
     Active Substance: ALLOPURINOL
     Indication: Prophylaxis
     Dosage: 300 MG
     Route: 048
     Dates: start: 20220919, end: 20220928
  20. ZOLPIDEM TARTRATE [Concomitant]
     Active Substance: ZOLPIDEM TARTRATE
     Indication: Prophylaxis
     Dosage: 7 DAYS
     Route: 048
     Dates: start: 20220927, end: 20220927
  21. TYLENOL 8 HOUR ER [Concomitant]
     Indication: Prophylaxis
     Dosage: 1950 MG
     Route: 048
     Dates: start: 20220926, end: 20220928
  22. URSODIOL [Concomitant]
     Active Substance: URSODIOL
     Indication: Prophylaxis
     Dosage: 8 DAYS
     Route: 048
     Dates: start: 20220926
  23. ZANAPAM [Concomitant]
     Indication: Depression
     Dosage: 7 DAYS
     Route: 048
     Dates: start: 20220927, end: 20220928
  24. PREDNISOLONE [Concomitant]
     Active Substance: PREDNISOLONE
     Indication: Acute lymphocytic leukaemia
     Dosage: 30 MG
     Route: 048
     Dates: start: 20220914, end: 20220918
  25. PREDNISOLONE [Concomitant]
     Active Substance: PREDNISOLONE
     Dosage: 50 MG
     Route: 048
     Dates: start: 20220919, end: 20220925
  26. PREDNISOLONE [Concomitant]
     Active Substance: PREDNISOLONE
     Dosage: FOR 8 DAYS
     Route: 048
     Dates: start: 20220926, end: 20220928

REACTIONS (2)
  - Hepatic failure [Fatal]
  - Septic shock [Not Recovered/Not Resolved]

NARRATIVE: CASE EVENT DATE: 20220928
